FAERS Safety Report 8062037-3 (Version None)
Quarter: 2012Q1

REPORT INFORMATION
  Report Type: 
  Country: None (occurrence: None)
  Receive Date: 20120123
  Receipt Date: 20120118
  Transmission Date: 20120608
  Serious: Yes (Life-Threatening, Hospitalization)
  Sender: FDA-Public Use
  Company Number: US-CELGENEUS-163-21880-12011927

PATIENT
  Sex: Male
  Weight: 113.5 kg

DRUGS (21)
  1. REVLIMID [Suspect]
     Indication: MULTIPLE MYELOMA
     Dosage: 10 MILLIGRAM
     Route: 048
     Dates: start: 20110901, end: 20120116
  2. GLYBURIDE [Concomitant]
     Route: 065
  3. AMBIEN [Concomitant]
     Route: 065
  4. SIMVASTATIN [Concomitant]
     Route: 065
  5. JANUVIA [Concomitant]
     Route: 065
  6. DEXAMETHASONE [Concomitant]
     Route: 065
  7. VITAMIN D [Concomitant]
     Route: 065
  8. COMPAZINE [Concomitant]
     Route: 065
  9. PRILOSEC [Concomitant]
     Route: 065
  10. LANTUS [Concomitant]
     Route: 065
  11. MULTI-VITAMINS [Concomitant]
     Route: 065
  12. RESTASIS [Concomitant]
     Route: 065
  13. OXYBUTYNIN [Concomitant]
     Route: 065
  14. ACTOS [Concomitant]
     Route: 065
  15. LISINOPRIL [Concomitant]
     Route: 065
  16. IRON [Concomitant]
     Route: 065
  17. ALLEGRA [Concomitant]
     Route: 065
  18. ASPIRIN [Concomitant]
     Dosage: 325 MILLIGRAM
     Route: 065
  19. ZOMETA [Concomitant]
     Route: 065
  20. VITAMIN B-12 [Concomitant]
     Route: 065
  21. FLEXERIL [Concomitant]
     Route: 065

REACTIONS (1)
  - HEART RATE INCREASED [None]
